FAERS Safety Report 6546400-5 (Version None)
Quarter: 2010Q1

REPORT INFORMATION
  Report Type: 
  Country: None (occurrence: None)
  Receive Date: 20100119
  Receipt Date: 20100106
  Transmission Date: 20100710
  Serious: Yes (Death, Hospitalization)
  Sender: FDA-Public Use
  Company Number: 2009AC000103

PATIENT
  Age: 76 Year
  Sex: Male

DRUGS (6)
  1. DIGOXIN [Suspect]
     Dosage: 0.25 MG;QD; PO
     Route: 048
  2. COUMADIN [Concomitant]
  3. METOPROLOL [Concomitant]
  4. KLOR-CON [Concomitant]
  5. FUROSEMIDE [Concomitant]
  6. ASPIRIN [Concomitant]

REACTIONS (13)
  - ASTHENIA [None]
  - CARDIOMEGALY [None]
  - CHEST PAIN [None]
  - DECUBITUS ULCER [None]
  - DYSPNOEA [None]
  - HAEMOPTYSIS [None]
  - HYPERHIDROSIS [None]
  - MULTIPLE INJURIES [None]
  - NAUSEA [None]
  - PNEUMONIA [None]
  - PULMONARY CONGESTION [None]
  - PULMONARY MASS [None]
  - SEPSIS [None]
